FAERS Safety Report 26031975 (Version 1)
Quarter: 2025Q4

REPORT INFORMATION
  Report Type: Report from Study
  Country: US (occurrence: US)
  Receive Date: 20251112
  Receipt Date: 20251112
  Transmission Date: 20260118
  Serious: Yes (Hospitalization)
  Sender: AMNEAL
  Company Number: US-AMNEAL PHARMACEUTICALS-2025-AMRX-04265

PATIENT
  Sex: Male

DRUGS (6)
  1. CARBIDOPA\LEVODOPA [Suspect]
     Active Substance: CARBIDOPA\LEVODOPA
     Indication: Product used for unknown indication
     Dosage: 23.75-95 MG AND 36.25-145MG 4 CAPSULES THREE TIMES DAILY AND 2 CAPSULES AT 8PM (36.25-145MG) AND 1 C
     Route: 048
  2. CARBIDOPA\LEVODOPA [Suspect]
     Active Substance: CARBIDOPA\LEVODOPA
     Dosage: 36.25-145MG 4 CAPSULES THREE TIMES A DAY AND TAKE 2 CAPSULES AT 8PM
     Route: 048
     Dates: start: 20250128
  3. CARBIDOPA\LEVODOPA [Suspect]
     Active Substance: CARBIDOPA\LEVODOPA
     Dosage: 36.25-145MG, 4 CAPSULES THREE TIMES A DAY AND TAKE 2 CAPSULES AT 8PM, AS WELL AS 23.75-95MG 1 CAPSUL
     Route: 048
  4. CARBIDOPA\LEVODOPA [Suspect]
     Active Substance: CARBIDOPA\LEVODOPA
     Dosage: PATIENT HAS ADDED BACK IN THE 23.75-95MG
     Route: 048
  5. CARBIDOPA\LEVODOPA [Suspect]
     Active Substance: CARBIDOPA\LEVODOPA
     Dosage: 23.75-95MG 1 CAPSULE THREE TIMES A DAY WITH THE FIRST 3 DOSES OF 36.25-145MG CAPSULES AND 36.25-145M
     Route: 048
  6. CARBIDOPA\LEVODOPA [Suspect]
     Active Substance: CARBIDOPA\LEVODOPA
     Dosage: 23.75/95 MG 1 CAPSULE THREE TIMES A DAY WITH THE FIRST 3 DOSES OF 145 MG CAPSULES AND 36.25/145 MG 4
     Route: 048
     Dates: start: 20251029

REACTIONS (1)
  - Hospitalisation [Unknown]
